FAERS Safety Report 7033738-0 (Version None)
Quarter: 2010Q4

REPORT INFORMATION
  Report Type: 
  Country: None (occurrence: None)
  Receive Date: 20101007
  Receipt Date: 20100921
  Transmission Date: 20110411
  Serious: Yes (Hospitalization)
  Sender: FDA-Public Use
  Company Number: PHHY2010BR65912

PATIENT
  Age: 57 Year
  Sex: Male
  Weight: 66 kg

DRUGS (14)
  1. DIOVAN [Suspect]
     Dosage: 320 MG, UNK
  2. ACETYLSALICYLIC ACID SRT [Concomitant]
     Dosage: 100 MG, UNK
  3. ATENOLOL [Concomitant]
     Dosage: 25 MG, UNK
  4. ATENOLOL [Concomitant]
     Dosage: 50 MG, UNK
  5. ATENOLOL [Concomitant]
     Dosage: 100 MG, UNK
  6. ATORVASTATIN [Concomitant]
     Dosage: 20 MG, UNK
  7. ATORVASTATIN [Concomitant]
     Dosage: 40 MG, UNK
  8. CARDIZEM [Concomitant]
     Dosage: 60 MG, BID
  9. CARDIZEM [Concomitant]
     Dosage: 60 MG, QD
  10. TRIMETAZIDINE [Concomitant]
     Dosage: TID (THRICE DAILY)
  11. TRIMETAZIDINE [Concomitant]
     Dosage: BID (TWICE DAILY)
  12. SUSTRATE [Concomitant]
     Dosage: 30 MG/DAY
  13. SUSTRATE [Concomitant]
     Dosage: THRICE DAILY
  14. ROSUVASTATIN [Concomitant]
     Dosage: 10 MG, QD

REACTIONS (2)
  - ANGINA PECTORIS [None]
  - HYPERTENSION [None]
